FAERS Safety Report 15197194 (Version 1)
Quarter: 2018Q3

REPORT INFORMATION
  Report Type: Spontaneous
  Country: FR (occurrence: FR)
  Receive Date: 20180725
  Receipt Date: 20180725
  Transmission Date: 20181010
  Serious: Yes (Other)
  Sender: FDA-Public Use
  Company Number: FR-MYLANLABS-2018M1053796

PATIENT
  Age: 48 Year
  Sex: Female

DRUGS (1)
  1. RIFAMPICIN [Suspect]
     Active Substance: RIFAMPIN
     Indication: PRODUCT USED FOR UNKNOWN INDICATION
     Dosage: UNK
     Route: 065

REACTIONS (6)
  - Disseminated intravascular coagulation [Unknown]
  - Acute kidney injury [Unknown]
  - Hypersensitivity [Unknown]
  - Haemolysis [Unknown]
  - Prothrombin time prolonged [Unknown]
  - Gastrointestinal disorder [Unknown]
